FAERS Safety Report 5004064-6 (Version None)
Quarter: 2006Q2

REPORT INFORMATION
  Report Type: 
  Country: None (occurrence: None)
  Receive Date: 20060515
  Receipt Date: 20060515
  Transmission Date: 20061013
  Serious: No
  Sender: FDA-Public Use
  Company Number: None

PATIENT
  Age: 78 Year
  Sex: Female
  Weight: 79.3795 kg

DRUGS (1)
  1. PHOSPHASODA         FLEETS [Suspect]
     Indication: COLONOSCOPY
     Dosage: 3 OUNCES   1XONLY  PO
     Route: 048
     Dates: start: 20030211, end: 20030211

REACTIONS (6)
  - BLOOD CREATININE INCREASED [None]
  - CHILLS [None]
  - PAIN [None]
  - POLLAKIURIA [None]
  - RENAL IMPAIRMENT [None]
  - SENSATION OF PRESSURE [None]
